FAERS Safety Report 7450325-0 (Version None)
Quarter: 2011Q2

REPORT INFORMATION
  Report Type: 
  Country: None (occurrence: None)
  Receive Date: 20110502
  Receipt Date: 20110218
  Transmission Date: 20111010
  Serious: Yes (Death, Hospitalization)
  Sender: FDA-Public Use
  Company Number: JP-BAYER-200913230BYL

PATIENT
  Age: 73 Year
  Sex: Male

DRUGS (4)
  1. VESICARE [Concomitant]
     Dosage: DAILY DOSE 25 MG
     Route: 048
  2. NEXAVAR [Suspect]
     Indication: HEPATIC NEOPLASM MALIGNANT
     Dosage: 400 MG, BID
     Route: 048
     Dates: start: 20090622, end: 20090828
  3. AMLODIPINE [Concomitant]
     Dosage: DAILY DOSE 5 MG
     Route: 048
  4. OXYCONTIN [Concomitant]
     Dosage: DAILY DOSE 10 MG
     Route: 048
     Dates: start: 20090626

REACTIONS (6)
  - HEPATIC NEOPLASM MALIGNANT [None]
  - BLOOD ALBUMIN DECREASED [None]
  - RASH [None]
  - GENITAL EROSION [None]
  - ANAEMIA [None]
  - PALMAR-PLANTAR ERYTHRODYSAESTHESIA SYNDROME [None]
